FAERS Safety Report 7491924-X (Version None)
Quarter: 2011Q2

REPORT INFORMATION
  Report Type: 
  Country: None (occurrence: None)
  Receive Date: 20110511
  Receipt Date: 20110426
  Transmission Date: 20111010
  Serious: Yes (Life-Threatening, Other)
  Sender: FDA-Public Use
  Company Number: DSA_45159_2011

PATIENT
  Sex: Male
  Weight: 99.7913 kg

DRUGS (4)
  1. CARDIZEM CD [Suspect]
     Indication: ATRIAL TACHYCARDIA
     Dosage: (ONE 360 MG CAPSULE QD ORAL), (TWO 180 MG CAPSULES QD ORAL)
     Route: 048
     Dates: start: 20110101
  2. CARDIZEM CD [Suspect]
     Indication: ATRIAL TACHYCARDIA
     Dosage: (ONE 360 MG CAPSULE QD ORAL), (TWO 180 MG CAPSULES QD ORAL)
     Route: 048
     Dates: start: 20101025, end: 20101231
  3. TAMSIILOSIN [Concomitant]
  4. VYTORIN [Concomitant]

REACTIONS (4)
  - DISEASE RECURRENCE [None]
  - DRUG INEFFECTIVE [None]
  - ATRIAL TACHYCARDIA [None]
  - HYPOTENSION [None]
